FAERS Safety Report 6021317-3 (Version None)
Quarter: 2008Q4

REPORT INFORMATION
  Report Type: 
  Country: None (occurrence: None)
  Receive Date: 20081229
  Receipt Date: 20081215
  Transmission Date: 20090506
  Serious: Yes (Other)
  Sender: FDA-Public Use
  Company Number: CA-PFIZER INC-2008155294

PATIENT

DRUGS (10)
  1. LYRICA [Suspect]
     Indication: BURNING SENSATION
     Dosage: 150 MG, 2X/DAY
     Route: 048
     Dates: start: 20081001
  2. AVELOX [Concomitant]
     Dosage: UNK
  3. PREDNISONE [Concomitant]
     Dosage: UNK
  4. ATACAND [Concomitant]
     Dosage: UNK
  5. TYLENOL W/ CODEINE NO. 3 [Concomitant]
     Dosage: UNK
  6. ALL OTHER THERAPEUTIC PRODUCTS [Concomitant]
     Dosage: UNK
  7. HYDROCHLOROTHIAZIDE [Concomitant]
     Dosage: UNK
  8. CRESTOR [Concomitant]
     Dosage: UNK
  9. SALBUTAMOL SULFATE [Concomitant]
  10. PULMICORT-100 [Concomitant]
     Dosage: UNK

REACTIONS (4)
  - BLINDNESS [None]
  - BLOOD GLUCOSE INCREASED [None]
  - VISION BLURRED [None]
  - WEIGHT INCREASED [None]
